FAERS Safety Report 8792583 (Version 3)
Quarter: 2013Q1

REPORT INFORMATION
  Report Type: Spontaneous
  Country: US (occurrence: US)
  Receive Date: 20120918
  Receipt Date: 20130124
  Transmission Date: 20140127
  Serious: Yes (Hospitalization, Other)
  Sender: FDA-Public Use
  Company Number: US-009507513-1208USA012130

PATIENT
  Age: 49 None
  Sex: Female

DRUGS (7)
  1. VICTRELIS [Suspect]
     Indication: HEPATITIS C
     Dosage: 800 MG, TID
     Route: 048
     Dates: start: 20120730, end: 201209
  2. PEGINTRON [Suspect]
     Indication: HEPATITIS C
     Dosage: UNK
     Dates: start: 201206, end: 201209
  3. RIBASPHERE [Suspect]
     Indication: HEPATITIS C
     Dosage: UNK
     Dates: start: 201206, end: 201209
  4. REMICADE [Concomitant]
  5. SOMA [Concomitant]
  6. NORCO [Concomitant]
  7. LUNESTA [Concomitant]

REACTIONS (16)
  - Pancytopenia [Recovering/Resolving]
  - White blood cell count decreased [Recovering/Resolving]
  - Pancreatitis [Unknown]
  - Abdominal pain [Recovering/Resolving]
  - Headache [Recovering/Resolving]
  - Red blood cell count decreased [Recovering/Resolving]
  - Fatigue [Recovering/Resolving]
  - Crying [Unknown]
  - Sluggishness [Unknown]
  - Migraine [Recovering/Resolving]
  - Abdominal distension [Unknown]
  - Constipation [Unknown]
  - Flatulence [Unknown]
  - Syncope [Recovering/Resolving]
  - Pyrexia [Unknown]
  - Depression [Unknown]
